FAERS Safety Report 7546317-3 (Version None)
Quarter: 2011Q2

REPORT INFORMATION
  Report Type: 
  Country: None (occurrence: None)
  Receive Date: 20110614
  Receipt Date: 20060627
  Transmission Date: 20111010
  Serious: Yes (Hospitalization, Other)
  Sender: FDA-Public Use
  Company Number: PHFR2006GB01675

PATIENT
  Sex: Female
  Weight: 86 kg

DRUGS (14)
  1. ACE INHIBITOR NOS [Concomitant]
     Route: 065
  2. DIURETICS [Concomitant]
     Route: 065
  3. METFORMIN HCL [Concomitant]
     Dosage: 1 G, TID
     Route: 048
  4. VIOFORM [Concomitant]
     Dosage: 2 DROPS TWICE A DAY
     Route: 061
  5. ROSIGLITAZONE [Concomitant]
     Dosage: 4MG EACH MORNING
     Route: 048
  6. ENALAPRIL MALEATE [Concomitant]
     Dosage: 5MG EACH MORNING
     Route: 048
  7. ASPIRIN [Concomitant]
     Dosage: 75 MG/MANE
     Route: 048
  8. BUMETANIDE [Concomitant]
     Dosage: 2MG EACH MORNING
     Route: 048
  9. NYSTATIN [Concomitant]
     Dosage: 1 ML, QID
     Route: 048
  10. VALPROATE SODIUM [Concomitant]
     Dosage: 1 G, QD
     Route: 048
  11. LANSOPRAZOLE [Concomitant]
     Dosage: 30MG/DAY
     Route: 048
  12. GLICLAZIDE [Concomitant]
     Dosage: 80 MG, BID
     Route: 048
  13. SENNA-MINT WAF [Concomitant]
     Dosage: 2 DOSES AT NIGHT
     Route: 048
  14. CLOZAPINE [Suspect]
     Indication: SCHIZOPHRENIA
     Dosage: 700MG/DAY
     Route: 048
     Dates: start: 19910516

REACTIONS (12)
  - CARDIAC FAILURE [None]
  - EAR PAIN [None]
  - ECZEMA [None]
  - GASTROENTERITIS [None]
  - LIMB DISCOMFORT [None]
  - DIARRHOEA [None]
  - NAUSEA [None]
  - MALAISE [None]
  - RASH GENERALISED [None]
  - EOSINOPHIL COUNT INCREASED [None]
  - FATIGUE [None]
  - ELECTROCARDIOGRAM ABNORMAL [None]
